FAERS Safety Report 9135476 (Version 1)
Quarter: 2013Q1

REPORT INFORMATION
  Report Type: Spontaneous
  Country: BR (occurrence: BR)
  Receive Date: 20130304
  Receipt Date: 20130304
  Transmission Date: 20140127
  Serious: Yes (Other)
  Sender: FDA-Public Use
  Company Number: BR-PFIZER INC-2013073490

PATIENT
  Age: 20 Year
  Sex: Female

DRUGS (1)
  1. DOSTINEX [Suspect]
     Indication: PITUITARY TUMOUR
     Dosage: 0.5 MG, 1X/WEEK (AT NIGHT)
     Route: 048
     Dates: start: 2010, end: 2012

REACTIONS (1)
  - Pituitary tumour recurrent [Unknown]
